FAERS Safety Report 21044467 (Version 1)
Quarter: 2022Q3

REPORT INFORMATION
  Report Type: Spontaneous
  Country: US (occurrence: None)
  Receive Date: 20220705
  Receipt Date: 20220705
  Transmission Date: 20221026
  Serious: Yes (Other)
  Sender: FDA-Public Use
  Company Number: 2022A239332

PATIENT
  Age: 15 Year
  Sex: Male

DRUGS (2)
  1. SELUMETINIB [Suspect]
     Active Substance: SELUMETINIB
     Indication: Neurofibroma
     Dosage: HELD FOR 2 WEEKS
     Route: 048
  2. SELUMETINIB [Suspect]
     Active Substance: SELUMETINIB
     Indication: Neurofibroma
     Dosage: RESUMED AT THE PRIOR DOSE
     Route: 048

REACTIONS (1)
  - Serous retinopathy [Recovered/Resolved]
